FAERS Safety Report 4860805-X (Version None)
Quarter: 2005Q4

REPORT INFORMATION
  Report Type: 
  Country: None (occurrence: None)
  Receive Date: 20051220
  Receipt Date: 20051206
  Transmission Date: 20060501
  Serious: Yes (Other)
  Sender: FDA-Public Use
  Company Number: US-JNJFOC-20051203346

PATIENT

DRUGS (2)
  1. DOXIL [Suspect]
     Route: 042
  2. GEMCITABINE [Suspect]
     Dosage: DAYS 1 AND 8 OF EACH 21-DAY CYCLE
     Route: 042

REACTIONS (1)
  - HAEMOLYTIC URAEMIC SYNDROME [None]
